FAERS Safety Report 20074810 (Version 6)
Quarter: 2022Q1

REPORT INFORMATION
  Report Type: Spontaneous
  Country: US (occurrence: US)
  Receive Date: 20211116
  Receipt Date: 20220212
  Transmission Date: 20220423
  Serious: Yes (Hospitalization, Other)
  Sender: FDA-Public Use
  Company Number: US-SA-SAC20211111001016

PATIENT
  Age: 51 Year
  Sex: Male

DRUGS (2)
  1. KEVZARA [Suspect]
     Active Substance: SARILUMAB
     Indication: Rheumatoid arthritis
     Dosage: 200 MG, QOW
     Route: 058
     Dates: start: 20210922
  2. OFEV [Concomitant]
     Active Substance: NINTEDANIB
     Indication: Lung disorder

REACTIONS (9)
  - COVID-19 [Unknown]
  - Lung disorder [Unknown]
  - Dyspnoea [Unknown]
  - Interstitial lung disease [Unknown]
  - Hospitalisation [Unknown]
  - Arthralgia [Unknown]
  - Myalgia [Unknown]
  - Dyspnoea [Unknown]
  - Diarrhoea [Unknown]

NARRATIVE: CASE EVENT DATE: 20210101
